FAERS Safety Report 4551491-7 (Version None)
Quarter: 2005Q1

REPORT INFORMATION
  Report Type: 
  Country: None (occurrence: None)
  Receive Date: 20050110
  Receipt Date: 20041223
  Transmission Date: 20050727
  Serious: Yes (Death)
  Sender: FDA-Public Use
  Company Number: 2004S1003786

PATIENT
  Age: 80 Year
  Sex: Female

DRUGS (4)
  1. CLOZAPINE [Suspect]
     Dosage: 12.5 MG HS, ORAL
     Route: 048
     Dates: start: 20040121
  2. ANTIBIOTIC [Concomitant]
  3. STEROID [Concomitant]
  4. DIABETIC MEDICATION [Concomitant]

REACTIONS (2)
  - PNEUMONIA ASPIRATION [None]
  - RESPIRATORY FAILURE [None]
